FAERS Safety Report 7710212-7 (Version None)
Quarter: 2011Q3

REPORT INFORMATION
  Report Type: 
  Country: None (occurrence: None)
  Receive Date: 20110825
  Receipt Date: 20110818
  Transmission Date: 20111222
  Serious: Yes (Hospitalization)
  Sender: FDA-Public Use
  Company Number: JP-PFIZER INC-2011191320

PATIENT
  Age: 68 Year
  Sex: Male
  Weight: 55 kg

DRUGS (14)
  1. TEMSIROLIMUS [Suspect]
     Dosage: 25 MG, SINGLE
     Route: 041
     Dates: start: 20110322, end: 20110322
  2. MUCOSTA [Concomitant]
     Dosage: 100 MG, 3X/DAY
     Route: 048
     Dates: start: 20110419, end: 20110425
  3. TEMSIROLIMUS [Suspect]
     Dosage: 25 MG, WEEKLY
     Route: 041
     Dates: start: 20110329, end: 20110401
  4. TEMSIROLIMUS [Suspect]
     Dosage: 25 MG, WEEKLY
     Route: 041
     Dates: start: 20110426, end: 20110502
  5. TEMSIROLIMUS [Suspect]
     Dosage: 25 MG, SINGLE
     Route: 041
     Dates: start: 20110315, end: 20110315
  6. POLARAMINE [Concomitant]
     Route: 042
  7. TEMSIROLIMUS [Suspect]
     Dosage: 25 MG, SINGLE
     Route: 041
     Dates: start: 20110308, end: 20110308
  8. TEMSIROLIMUS [Suspect]
     Dosage: 25 MG, WEEKLY
     Route: 041
     Dates: start: 20110412, end: 20110418
  9. TEMSIROLIMUS [Suspect]
     Dosage: 25 MG, UNK
     Route: 041
     Dates: start: 20110510, end: 20110517
  10. POLARAMINE [Concomitant]
     Indication: PROPHYLAXIS
     Dosage: 5 MG, 1X/DAY
     Route: 042
  11. TEMSIROLIMUS [Suspect]
     Dosage: 25 MG, WEEKLY
     Route: 041
     Dates: start: 20110419, end: 20110425
  12. PURSENNID [Concomitant]
     Dosage: 24 MG, 1X/DAY
     Route: 048
     Dates: start: 20110419, end: 20110509
  13. TEMSIROLIMUS [Suspect]
     Indication: RENAL CELL CARCINOMA
     Dosage: 25 MG, SINGLE
     Route: 041
     Dates: start: 20110301
  14. DEXCHLORPHENIRAMINE MALEATE [Concomitant]
     Indication: PROPHYLAXIS
     Route: 042

REACTIONS (1)
  - IRON DEFICIENCY ANAEMIA [None]
